FAERS Safety Report 11279999 (Version 4)
Quarter: 2018Q3

REPORT INFORMATION
  Report Type: Spontaneous
  Country: US (occurrence: US)
  Receive Date: 20150717
  Receipt Date: 20180716
  Transmission Date: 20181010
  Serious: Yes (Hospitalization, Other)
  Sender: FDA-Public Use
  Company Number: US-DSJP-DSU-2015-122109

PATIENT

DRUGS (2)
  1. BENICAR HCT [Suspect]
     Active Substance: HYDROCHLOROTHIAZIDE\OLMESARTAN MEDOXOMIL
     Indication: HYPERTENSION
     Dosage: 40/12.5 MG
     Dates: start: 20110222, end: 20140423
  2. BENICAR [Suspect]
     Active Substance: OLMESARTAN MEDOXOMIL
     Indication: HYPERTENSION
     Dosage: 40 MG, QD
     Dates: start: 20091229, end: 20110213

REACTIONS (19)
  - Haemorrhoids [Unknown]
  - Rectal haemorrhage [Unknown]
  - Hiatus hernia [Unknown]
  - Depression [Recovered/Resolved]
  - Pyrexia [Unknown]
  - Gastrointestinal sounds abnormal [Unknown]
  - Somnolence [Unknown]
  - Diverticulitis [Unknown]
  - Diverticulum [Unknown]
  - Anaemia [Unknown]
  - Myalgia [Unknown]
  - Renal failure [Unknown]
  - Pain in extremity [Unknown]
  - Asthenia [Unknown]
  - Vitamin B complex deficiency [Unknown]
  - Anxiety [Recovered/Resolved]
  - Sprue-like enteropathy [Not Recovered/Not Resolved]
  - Gait disturbance [Unknown]
  - Polyp [Unknown]

NARRATIVE: CASE EVENT DATE: 2010
